FAERS Safety Report 6336613-X (Version None)
Quarter: 2009Q3

REPORT INFORMATION
  Report Type: 
  Country: None (occurrence: None)
  Receive Date: 20090831
  Receipt Date: 20090831
  Transmission Date: 20100115
  Serious: Yes (Hospitalization)
  Sender: FDA-Public Use
  Company Number: None

PATIENT
  Age: 62 Year
  Sex: Male
  Weight: 55.7924 kg

DRUGS (1)
  1. BYETTA [Suspect]
     Indication: DIABETES MELLITUS
     Dosage: 10 MCG BID SQ
     Dates: start: 20070527, end: 20090729

REACTIONS (5)
  - CHEST PAIN [None]
  - DRUG INTOLERANCE [None]
  - PAIN [None]
  - PANCREATIC CYST [None]
  - PANCREATITIS [None]
